FAERS Safety Report 9973730 (Version 5)
Quarter: 2014Q2

REPORT INFORMATION
  Report Type: Spontaneous
  Country: CH (occurrence: JP)
  Receive Date: 20140306
  Receipt Date: 20140410
  Transmission Date: 20141212
  Serious: Yes (Death, Disabling, Other)
  Sender: FDA-Public Use
  Company Number: CH-SA-2014SA025947

PATIENT
  Age: 67 Year
  Sex: Male
  Weight: 61 kg

DRUGS (18)
  1. ELPLAT [Suspect]
     Indication: PANCREATIC CARCINOMA
     Route: 041
     Dates: start: 20140129, end: 20140129
  2. ELPLAT [Suspect]
     Indication: PANCREATIC CARCINOMA
     Route: 041
     Dates: start: 20140213, end: 20140213
  3. CAMPTO [Suspect]
     Indication: PANCREATIC CARCINOMA
     Route: 041
     Dates: start: 20140129, end: 20140129
  4. CAMPTO [Suspect]
     Indication: PANCREATIC CARCINOMA
     Route: 041
     Dates: start: 20140213, end: 20140213
  5. 5 FU [Suspect]
     Indication: PANCREATIC CARCINOMA
     Route: 041
     Dates: start: 20140213, end: 20140213
  6. 5 FU [Suspect]
     Indication: PANCREATIC CARCINOMA
     Route: 041
     Dates: start: 20140129, end: 20140129
  7. 5 FU [Suspect]
     Indication: PANCREATIC CARCINOMA
     Route: 040
     Dates: start: 20140129, end: 20140129
  8. LEVOFOLINATE [Concomitant]
     Dates: start: 20140129, end: 20140213
  9. DECADRON [Concomitant]
     Dates: start: 20140129, end: 20140213
  10. GRANISETRON [Concomitant]
     Dates: start: 20140129, end: 20140213
  11. LOXOPROFEN [Concomitant]
     Dates: start: 20140129, end: 20140213
  12. HACHIAZULE [Concomitant]
     Dates: start: 20140203
  13. MUCOSTA [Concomitant]
     Dates: start: 20140203
  14. CARBOCISTEINE [Concomitant]
     Dates: start: 20140205
  15. DESPA KOWA [Concomitant]
     Dates: start: 20140207
  16. VOLTAREN [Concomitant]
     Dates: start: 20140210
  17. NEU-UP [Concomitant]
     Dates: start: 20140210, end: 20140212
  18. HUMULIN R [Concomitant]
     Dates: start: 20140128

REACTIONS (5)
  - Gastrointestinal haemorrhage [Fatal]
  - Tumour lysis syndrome [Fatal]
  - Stomatitis [Recovered/Resolved]
  - Neutrophil count decreased [Recovered/Resolved]
  - White blood cell count decreased [Recovered/Resolved]
